FAERS Safety Report 6259256-5 (Version None)
Quarter: 2009Q3

REPORT INFORMATION
  Report Type: 
  Country: None (occurrence: None)
  Receive Date: 20090702
  Receipt Date: 20090618
  Transmission Date: 20100115
  Serious: Yes (Other)
  Sender: FDA-Public Use
  Company Number: POMP-1000622

PATIENT
  Age: 13 Year
  Sex: Male
  Weight: 45 kg

DRUGS (1)
  1. MYOZYME [Suspect]
     Indication: GLYCOGEN STORAGE DISEASE TYPE II
     Dosage: 20 MG/KG, Q2W, INTRAVENOUS
     Route: 042
     Dates: start: 20070401

REACTIONS (4)
  - DISEASE PROGRESSION [None]
  - SCOLIOSIS [None]
  - THERAPEUTIC RESPONSE DECREASED [None]
  - WEIGHT GAIN POOR [None]
